FAERS Safety Report 18717954 (Version 1)
Quarter: 2021Q1

REPORT INFORMATION
  Report Type: Spontaneous
  Country: US (occurrence: US)
  Receive Date: 20210108
  Receipt Date: 20210108
  Transmission Date: 20210419
  Serious: Yes (Death, Hospitalization)
  Sender: FDA-Public Use
  Company Number: US-BAYER-2020-287289

PATIENT
  Age: 88 Year
  Sex: Male

DRUGS (1)
  1. ACETYLSALICYLIC ACID + CAFFEINE [Suspect]
     Active Substance: ASPIRIN\CAFFEINE

REACTIONS (2)
  - Intentional overdose [Fatal]
  - Toxicity to various agents [Fatal]
